FAERS Safety Report 19230166 (Version 1)
Quarter: 2021Q2

REPORT INFORMATION
  Report Type: Spontaneous
  Country: US (occurrence: US)
  Receive Date: 20210506
  Receipt Date: 20210506
  Transmission Date: 20210717
  Serious: Yes (Death)
  Sender: FDA-Public Use
  Company Number: None

PATIENT
  Sex: Male

DRUGS (2)
  1. COSENTYX [Suspect]
     Active Substance: SECUKINUMAB
     Indication: PSORIASIS
     Dosage: ?          OTHER FREQUENCY:Q 28 DAYS ;?
     Route: 058
     Dates: start: 20190911
  2. ENTECAVIR 0.5MG [Suspect]
     Active Substance: ENTECAVIR
     Indication: PSORIASIS
     Route: 048
     Dates: start: 20190905

REACTIONS (1)
  - Death [None]
